FAERS Safety Report 23145448 (Version 2)
Quarter: 2023Q4

REPORT INFORMATION
  Report Type: Spontaneous
  Country: US (occurrence: US)
  Receive Date: 20231103
  Receipt Date: 20231109
  Transmission Date: 20240110
  Serious: Yes (Hospitalization)
  Sender: FDA-Public Use
  Company Number: US-ELI_LILLY_AND_COMPANY-US202310016246

PATIENT

DRUGS (3)
  1. BASAGLAR [Suspect]
     Active Substance: INSULIN GLARGINE
     Indication: Product used for unknown indication
     Dosage: 20 U, DAILY (NIGHTLY)
     Route: 058
  2. HUMALOG [Suspect]
     Active Substance: INSULIN LISPRO
     Indication: Product used for unknown indication
     Dosage: 30 U, DAILY
     Route: 058
  3. HUMALOG [Suspect]
     Active Substance: INSULIN LISPRO
     Dosage: 6 U, TID
     Route: 058

REACTIONS (1)
  - Cerebrovascular accident [Unknown]
